FAERS Safety Report 23379366 (Version 1)
Quarter: 2024Q1

REPORT INFORMATION
  Report Type: Spontaneous
  Country: US (occurrence: US)
  Receive Date: 20240108
  Receipt Date: 20240108
  Transmission Date: 20240410
  Serious: Yes (Other)
  Sender: FDA-Public Use
  Company Number: US-PFIZER INC-15501

PATIENT
  Age: 79 Year
  Sex: Female
  Weight: 50 kg

DRUGS (10)
  1. LIDOCAINE HYDROCHLORIDE [Interacting]
     Active Substance: LIDOCAINE HYDROCHLORIDE
     Indication: Local anaesthesia
     Dosage: 0.25 MG/KG/MIN, (100 MG PER MINUTE)
     Route: 042
  2. LIDOCAINE HYDROCHLORIDE [Interacting]
     Active Substance: LIDOCAINE HYDROCHLORIDE
     Dosage: 0.25 MG/KG/H
  3. SEVOFLURANE [Interacting]
     Active Substance: SEVOFLURANE
     Indication: Anaesthesia
     Dosage: UNK (IN N2O/O2)
  4. SEVOFLURANE [Interacting]
     Active Substance: SEVOFLURANE
     Indication: Maintenance of anaesthesia
  5. FENTANYL CITRATE [Concomitant]
     Active Substance: FENTANYL CITRATE
     Indication: Induction of anaesthesia
     Dosage: 50 UG
  6. GLYCOPYRROLATE [Concomitant]
     Active Substance: GLYCOPYRROLATE
     Dosage: 1 MG
  7. MIDAZOLAM [Concomitant]
     Active Substance: MIDAZOLAM
     Dosage: 1 MG
  8. NEOSTIGMIN [NEOSTIGMINE] [Concomitant]
     Dosage: 5 MG
  9. PROPOFOL [Concomitant]
     Active Substance: PROPOFOL
     Indication: Induction of anaesthesia
     Dosage: 100 MG
  10. ROCURONIUM [Concomitant]
     Active Substance: ROCURONIUM BROMIDE
     Indication: Induction of anaesthesia
     Dosage: 50 MG

REACTIONS (5)
  - Accidental overdose [Recovered/Resolved]
  - Drug interaction [Recovered/Resolved]
  - Bispectral index decreased [Recovered/Resolved]
  - Hypotension [Recovered/Resolved]
  - Supraventricular extrasystoles [Recovered/Resolved]
